FAERS Safety Report 22396697 (Version 2)
Quarter: 2023Q2

REPORT INFORMATION
  Report Type: Spontaneous
  Country: US (occurrence: US)
  Receive Date: 20230601
  Receipt Date: 20230607
  Transmission Date: 20230722
  Serious: No
  Sender: FDA-Public Use
  Company Number: US-APIL-2313629US

PATIENT
  Sex: Female

DRUGS (5)
  1. CYCLOSPORINE [Suspect]
     Active Substance: CYCLOSPORINE
     Indication: Dry eye
     Dosage: DAILY DOSE: 4.0 GTT, TOTAL: 172.0 GTT, 	?1 DROP IN BOTH EYES IN THE MORNING AND NIGHT
     Route: 047
     Dates: start: 20230321, end: 20230502
  2. TRAVATAN Z [Concomitant]
     Active Substance: TRAVOPROST
     Indication: Product used for unknown indication
  3. TRYPTOPHAN [Concomitant]
     Active Substance: TRYPTOPHAN
     Indication: Glaucoma
     Dosage: DAILY DOSE: 2.0 GTT, FREQUENCY: AT BEDTIME
  4. COSOPT [Concomitant]
     Active Substance: DORZOLAMIDE HYDROCHLORIDE\TIMOLOL MALEATE
     Indication: Glaucoma
     Dosage: DAILY DOSE: 2.0 GTT
  5. CRESTOR [Concomitant]
     Active Substance: ROSUVASTATIN CALCIUM
     Indication: Blood cholesterol increased
     Dosage: DAILY DOSE: 1.0 DF
     Dates: start: 202303

REACTIONS (18)
  - Abdominal discomfort [Unknown]
  - Throat tightness [Unknown]
  - Gait disturbance [Unknown]
  - Pain [Unknown]
  - Headache [Not Recovered/Not Resolved]
  - Anxiety [Unknown]
  - Pruritus [Unknown]
  - Decreased appetite [Unknown]
  - Heart rate increased [Unknown]
  - Axillary pain [Unknown]
  - Dyspnoea [Unknown]
  - Muscular weakness [Recovering/Resolving]
  - Balance disorder [Unknown]
  - Hunger [Unknown]
  - Nausea [Not Recovered/Not Resolved]
  - Dizziness [Unknown]
  - Myalgia [Recovering/Resolving]
  - Malaise [Unknown]

NARRATIVE: CASE EVENT DATE: 20230424
